APPROVED DRUG PRODUCT: CALCIUM ACETATE
Active Ingredient: CALCIUM ACETATE
Strength: 667MG
Dosage Form/Route: CAPSULE;ORAL
Application: A201658 | Product #001
Applicant: AMNEAL PHARMACEUTICALS
Approved: Oct 6, 2014 | RLD: No | RS: No | Type: DISCN